FAERS Safety Report 4575268-1 (Version None)
Quarter: 2005Q1

REPORT INFORMATION
  Report Type: 
  Country: None (occurrence: None)
  Receive Date: 20050209
  Receipt Date: 20040630
  Transmission Date: 20050727
  Serious: Yes (Congenital Anomaly, Other)
  Sender: FDA-Public Use
  Company Number: BR-ABBOTT-04P-020-0265662-00

PATIENT
  Sex: Female
  Weight: 64 kg

DRUGS (4)
  1. IBERIN FOLICO TABLETS [Suspect]
     Indication: HYPOVITAMINOSIS
     Dosage: 525MG FERROUS SULFATE, 800MCG FOLIC ACID
     Route: 048
     Dates: start: 20040607
  2. PURAN [Concomitant]
     Indication: HYPOTHYROIDISM
     Route: 048
  3. PREDNISONE [Concomitant]
     Indication: RHEUMATOID ARTHRITIS
  4. REUTRIXATO [Concomitant]
     Indication: RHEUMATOID ARTHRITIS

REACTIONS (4)
  - ABORTION SPONTANEOUS [None]
  - AMNIOTIC CAVITY DISORDER [None]
  - DRUG EXPOSURE DURING PREGNANCY [None]
  - FOETAL GROWTH RETARDATION [None]
